FAERS Safety Report 17474862 (Version 2)
Quarter: 2020Q2

REPORT INFORMATION
  Report Type: Spontaneous
  Country: US (occurrence: US)
  Receive Date: 20200228
  Receipt Date: 20200403
  Transmission Date: 20200713
  Serious: No
  Sender: FDA-Public Use
  Company Number: US-ASTRAZENECA-2020SE22560

PATIENT
  Age: 21801 Day
  Sex: Male
  Weight: 91.6 kg

DRUGS (4)
  1. BYDUREON [Suspect]
     Active Substance: EXENATIDE
     Indication: DIABETES MELLITUS
     Route: 065
     Dates: start: 20191119
  2. NOVOLIN 70/30 [Concomitant]
     Active Substance: INSULIN HUMAN
  3. METFORMIN [Concomitant]
     Active Substance: METFORMIN HYDROCHLORIDE
  4. BYDUREON [Suspect]
     Active Substance: EXENATIDE
     Indication: DIABETES MELLITUS
     Route: 065
     Dates: start: 201912

REACTIONS (5)
  - Injection site extravasation [Unknown]
  - Device issue [Unknown]
  - Drug delivery system malfunction [Recovered/Resolved]
  - Blood glucose increased [Unknown]
  - Incorrect dose administered by device [Unknown]

NARRATIVE: CASE EVENT DATE: 20200127
